FAERS Safety Report 7319157-8 (Version None)
Quarter: 2011Q1

REPORT INFORMATION
  Report Type: 
  Country: None (occurrence: None)
  Receive Date: 20110228
  Receipt Date: 20110216
  Transmission Date: 20110831
  Serious: Yes (Other)
  Sender: FDA-Public Use
  Company Number: PHFR2010GB05048

PATIENT
  Sex: Male

DRUGS (4)
  1. PENICILLIN [Concomitant]
  2. CLOZARIL [Suspect]
     Indication: SCHIZOPHRENIA
     Dosage: UNK
     Route: 048
     Dates: start: 19951018
  3. CLOZARIL [Suspect]
     Route: 048
     Dates: start: 20010701
  4. ANALGESICS [Concomitant]

REACTIONS (5)
  - PYREXIA [None]
  - PETIT MAL EPILEPSY [None]
  - INFECTION [None]
  - DIFFERENTIAL WHITE BLOOD CELL COUNT ABNORMAL [None]
  - WHITE BLOOD CELL COUNT INCREASED [None]
